FAERS Safety Report 14462427 (Version 3)
Quarter: 2018Q2

REPORT INFORMATION
  Report Type: Not Available
  Country: US (occurrence: US)
  Receive Date: 20180130
  Receipt Date: 20180419
  Transmission Date: 20180711
  Serious: Yes (Hospitalization, Other)
  Sender: FDA-Public Use
  Company Number: US-NEUROCRINE BIOSCIENCES INC.-2018NBI00179

PATIENT
  Age: 75 Year
  Sex: Female

DRUGS (2)
  1. INGREZZA [Suspect]
     Active Substance: VALBENAZINE
     Indication: PRODUCT USED FOR UNKNOWN INDICATION
     Route: 048
     Dates: start: 20171222, end: 20171229
  2. INGREZZA [Suspect]
     Active Substance: VALBENAZINE
     Route: 048
     Dates: start: 20171230, end: 20180113

REACTIONS (7)
  - Gait disturbance [Unknown]
  - Retching [Unknown]
  - Pruritus [Unknown]
  - Urticaria [Unknown]
  - Hypersensitivity [Unknown]
  - Lip swelling [Unknown]
  - Nausea [Unknown]

NARRATIVE: CASE EVENT DATE: 20180113
